FAERS Safety Report 6196880-2 (Version None)
Quarter: 2009Q2

REPORT INFORMATION
  Report Type: 
  Country: None (occurrence: None)
  Receive Date: 20090518
  Receipt Date: 20090518
  Transmission Date: 20091009
  Serious: No
  Sender: FDA-Public Use
  Company Number: None

PATIENT
  Age: 76 Year
  Sex: Female

DRUGS (1)
  1. ACTONEL [Suspect]
     Dosage: 1 TABLET ONCE A MONTH

REACTIONS (2)
  - CHILLS [None]
  - PYREXIA [None]
